FAERS Safety Report 23689829 (Version 1)
Quarter: 2024Q1

REPORT INFORMATION
  Report Type: Spontaneous
  Country: US (occurrence: US)
  Receive Date: 20240331
  Receipt Date: 20240331
  Transmission Date: 20240409
  Serious: No
  Sender: FDA-Public Use
  Company Number: US-MSNLABS-2024MSNSPO00634

PATIENT

DRUGS (1)
  1. PREGABALIN [Suspect]
     Active Substance: PREGABALIN
     Indication: Fibromyalgia
     Dosage: CAPSULE
     Route: 048

REACTIONS (3)
  - Product substitution issue [Unknown]
  - Euphoric mood [Unknown]
  - Somnolence [Unknown]
